FAERS Safety Report 7700979-6 (Version None)
Quarter: 2011Q3

REPORT INFORMATION
  Report Type: 
  Country: None (occurrence: None)
  Receive Date: 20110822
  Receipt Date: 20110817
  Transmission Date: 20111222
  Serious: Yes (Death)
  Sender: FDA-Public Use
  Company Number: US-ASTELLAS-2011US005047

PATIENT
  Sex: Male

DRUGS (9)
  1. NEXIUM [Concomitant]
     Indication: GASTROOESOPHAGEAL REFLUX DISEASE
     Dosage: 40 MG, UID/QD
     Route: 065
  2. HYDROCODONE [Concomitant]
     Indication: PAIN
     Dosage: 500 MG, PRN
     Route: 065
  3. LOMOTIL [Concomitant]
     Indication: DIARRHOEA
     Dosage: 0.025 MG, PRN
     Route: 065
  4. NEURONTIN [Concomitant]
     Indication: PRODUCT USED FOR UNKNOWN INDICATION
     Dosage: 100 MG, BID
     Route: 065
  5. PREDNISONE [Concomitant]
     Indication: RENAL AND PANCREAS TRANSPLANT
     Dosage: 5 MG, UID/QD
     Route: 065
  6. PROGRAF [Suspect]
     Indication: RENAL AND PANCREAS TRANSPLANT
     Dosage: 1 MG, BID
     Route: 048
     Dates: start: 20041012
  7. CELL CEPT [Concomitant]
     Indication: RENAL AND PANCREAS TRANSPLANT
     Dosage: 250 MG, BID
     Route: 065
     Dates: start: 20041012
  8. COUMADIN [Concomitant]
     Indication: THROMBOSIS PROPHYLAXIS
     Dosage: 5 MG, UID/QD
     Route: 065
  9. ALPRAZOLAM [Concomitant]
     Indication: SLEEP DISORDER
     Dosage: 1 MG, UID/QD
     Route: 065

REACTIONS (2)
  - OFF LABEL USE [None]
  - CEREBRAL HAEMORRHAGE [None]
